FAERS Safety Report 9459998 (Version 1)
Quarter: 2013Q3

REPORT INFORMATION
  Report Type: Spontaneous
  Country: US (occurrence: None)
  Receive Date: 20130813
  Receipt Date: 20130813
  Transmission Date: 20140515
  Serious: No
  Sender: FDA-Public Use
  Company Number: None

PATIENT
  Age: 68 Year
  Sex: Female
  Weight: 69.4 kg

DRUGS (4)
  1. PREMARIN VAGINAL CREAM [Suspect]
     Indication: VULVOVAGINAL DRYNESS
     Route: 067
     Dates: start: 20020701
  2. MULTIVITAMINS [Concomitant]
  3. CALCIUM [Concomitant]
  4. 500 MG MEGNESIUM [Concomitant]

REACTIONS (1)
  - Product packaging quantity issue [None]
